FAERS Safety Report 8076919-X (Version None)
Quarter: 2012Q1

REPORT INFORMATION
  Report Type: 
  Country: None (occurrence: None)
  Receive Date: 20120127
  Receipt Date: 20120113
  Transmission Date: 20120608
  Serious: Yes (Other)
  Sender: FDA-Public Use
  Company Number: PHHY2011JP112732

PATIENT
  Age: 67 Year
  Sex: Male

DRUGS (4)
  1. MYCOPHENOLATE MOFETIL [Concomitant]
     Route: 048
  2. CYCLOSPORINE [Suspect]
     Indication: RENAL TRANSPLANT
     Route: 048
  3. CORTICOSTEROIDS [Concomitant]
     Dosage: UNK
     Route: 048
  4. STEROIDS NOS [Concomitant]

REACTIONS (3)
  - RENAL IMPAIRMENT [None]
  - ANGINA PECTORIS [None]
  - BLOOD CREATININE INCREASED [None]
